FAERS Safety Report 8882648 (Version 1)
Quarter: 2012Q4

REPORT INFORMATION
  Report Type: 
  Country: US (occurrence: US)
  Receive Date: 20121105
  Receipt Date: 20121105
  Transmission Date: 20130627
  Serious: No
  Sender: FDA-Public Use
  Company Number: US-B.I. PHARMACEUTICALS,INC./RIDGEFIELD-2012-BP-27103BP

PATIENT
  Sex: Female

DRUGS (5)
  1. PRADAXA [Suspect]
     Indication: ATRIAL FIBRILLATION
     Dosage: 300 mg
     Route: 048
     Dates: start: 2011
  2. VITAMIN D [Concomitant]
     Route: 048
  3. SOTALOL [Concomitant]
     Dosage: 160 mg
     Route: 048
  4. CO Q10 [Concomitant]
     Route: 048
  5. IRON [Concomitant]
     Route: 048

REACTIONS (2)
  - Back pain [Not Recovered/Not Resolved]
  - Condition aggravated [Not Recovered/Not Resolved]
